FAERS Safety Report 8621607-1 (Version None)
Quarter: 2012Q3

REPORT INFORMATION
  Report Type: 
  Country: None (occurrence: None)
  Receive Date: 20120820
  Receipt Date: 20120820
  Transmission Date: 20120928
  Serious: Yes (Death)
  Sender: FDA-Public Use
  Company Number: None

PATIENT
  Age: 74 Year
  Sex: Male

DRUGS (6)
  1. RANITIDINE [Concomitant]
  2. METOPROLOL TARTRATE [Concomitant]
  3. ONDANSETRON [Concomitant]
  4. LORAZEPAM [Concomitant]
  5. REVLIMID [Suspect]
     Indication: MULTIPLE MYELOMA
     Dosage: REVLIMID 5 MG DAILY X21D/28D ORALLY
     Route: 048
     Dates: start: 20120701
  6. REVLIMID [Suspect]
     Indication: MULTIPLE MYELOMA
     Dosage: REVLIMID 5 MG DAILY X21D/28D ORALLY
     Route: 048
     Dates: start: 20111201, end: 20120501

REACTIONS (6)
  - DISEASE PROGRESSION [None]
  - DRUG EFFECT DECREASED [None]
  - FATIGUE [None]
  - GAIT DISTURBANCE [None]
  - HYPOPHAGIA [None]
  - MULTIPLE MYELOMA [None]
